FAERS Safety Report 6312512-4 (Version None)
Quarter: 2009Q3

REPORT INFORMATION
  Report Type: 
  Country: None (occurrence: None)
  Receive Date: 20090813
  Receipt Date: 20090804
  Transmission Date: 20100115
  Serious: Yes (Death, Hospitalization)
  Sender: FDA-Public Use
  Company Number: 2009AL003728

PATIENT
  Age: 49 Year
  Sex: Male

DRUGS (1)
  1. DIGOXIN [Suspect]
     Dosage: PO
     Route: 048

REACTIONS (8)
  - ACUTE CORONARY SYNDROME [None]
  - ASTHENIA [None]
  - CARDIAC ARREST [None]
  - CARDIOMYOPATHY [None]
  - ELECTROMECHANICAL DISSOCIATION [None]
  - FEELING ABNORMAL [None]
  - SWELLING [None]
  - WEIGHT INCREASED [None]
